FAERS Safety Report 4849908-3 (Version None)
Quarter: 2005Q4

REPORT INFORMATION
  Report Type: 
  Country: None (occurrence: None)
  Receive Date: 20051114
  Receipt Date: 20041202
  Transmission Date: 20060501
  Serious: Yes (Disabling)
  Sender: FDA-Public Use
  Company Number: 20041200496

PATIENT
  Sex: Male

DRUGS (2)
  1. PROMETHAZINE [Suspect]
     Dosage: 12.5 MG; ONCE; IV
     Route: 042
     Dates: start: 20001030, end: 20001030
  2. LOPRESSOR [Concomitant]

REACTIONS (1)
  - GANGRENE [None]
